FAERS Safety Report 21943453 (Version 1)
Quarter: 2023Q1

REPORT INFORMATION
  Report Type: Spontaneous
  Country: US (occurrence: US)
  Receive Date: 20230202
  Receipt Date: 20230202
  Transmission Date: 20230417
  Serious: No
  Sender: FDA-Public Use
  Company Number: US-PADAGIS-2023PAD00073

PATIENT

DRUGS (4)
  1. HYDROCORTISONE [Suspect]
     Active Substance: HYDROCORTISONE
     Indication: Skin lesion
     Dosage: UNK
     Route: 061
  2. BACITRACIN [Suspect]
     Active Substance: BACITRACIN
     Indication: Skin lesion
     Dosage: UNK
     Route: 061
  3. VITAMIN E [Suspect]
     Active Substance: .ALPHA.-TOCOPHEROL
     Indication: Skin lesion
     Dosage: UNK
     Route: 061
  4. LAVENDER OIL [Suspect]
     Active Substance: LAVENDER OIL
     Indication: Skin lesion
     Dosage: UNK
     Route: 061

REACTIONS (1)
  - Drug ineffective for unapproved indication [Unknown]
